FAERS Safety Report 19211209 (Version 2)
Quarter: 2021Q3

REPORT INFORMATION
  Report Type: Report from Study
  Country: CA (occurrence: CA)
  Receive Date: 20210504
  Receipt Date: 20210824
  Transmission Date: 20211014
  Serious: Yes (Hospitalization, Other)
  Sender: FDA-Public Use
  Company Number: CA-ASTRAZENECA-2021A366099

PATIENT
  Age: 51 Year
  Sex: Female

DRUGS (15)
  1. ALVESCO [Suspect]
     Active Substance: CICLESONIDE
     Indication: ASTHMA
     Dosage: 2 PUFF(S), TWO TIMES A DAY
     Route: 055
  2. BUDESONIDE/FORMOTEROL FUMARATE DIHYDRATE [Suspect]
     Active Substance: BUDESONIDE\FORMOTEROL FUMARATE DIHYDRATE
     Indication: ASTHMA
     Dosage: 2 PUFF(S),TWO TIMES A DAY, 200/6
     Route: 055
     Dates: end: 20200710
  3. FLOVENT [Suspect]
     Active Substance: FLUTICASONE PROPIONATE
     Indication: ASTHMA
     Dosage: 1 PUFF(S), TWO TIMES A DAY
     Route: 055
  4. PREDNISONE. [Suspect]
     Active Substance: PREDNISONE
     Indication: PRODUCT USED FOR UNKNOWN INDICATION
     Route: 048
  5. MONTELUKAST SODIUM. [Suspect]
     Active Substance: MONTELUKAST SODIUM
     Indication: ASTHMA
     Route: 065
  6. PREDNISONE. [Suspect]
     Active Substance: PREDNISONE
     Indication: ASTHMA
     Route: 048
     Dates: start: 2018
  7. SINGULAIR [Suspect]
     Active Substance: MONTELUKAST SODIUM
     Indication: ASTHMA
     Route: 065
  8. SPIRIVA [Suspect]
     Active Substance: TIOTROPIUM BROMIDE MONOHYDRATE
     Indication: ASTHMA
     Dosage: 2 PUFF(S), DAILY
     Route: 055
  9. THEOPHYLLINE [Suspect]
     Active Substance: THEOPHYLLINE ANHYDROUS
     Indication: ASTHMA
     Route: 065
  10. FORMOTEROL FUMARATE/MOMETASONE FUROATE [Suspect]
     Active Substance: FORMOTEROL FUMARATE\MOMETASONE FUROATE
     Indication: ASTHMA
     Dosage: 2 PUFF(S), TWO TIMES A DAY
     Route: 055
  11. AZITHROMYCIN ANHYDROUS. [Suspect]
     Active Substance: AZITHROMYCIN ANHYDROUS
     Indication: ASTHMA
     Dosage: 250 MG, Z. 3 TIMES A WEEK250.0MG UNKNOWN
     Route: 065
  12. PREDNISONE. [Suspect]
     Active Substance: PREDNISONE
     Indication: ASTHMA
     Route: 048
  13. TIOTROPIUM BROMIDE [Suspect]
     Active Substance: TIOTROPIUM BROMIDE
     Indication: ASTHMA
     Dosage: 2 PUFF(S), DAILY
     Route: 055
     Dates: end: 20200710
  14. SALBUTAMOL SULFATE [Suspect]
     Active Substance: ALBUTEROL SULFATE
     Indication: ASTHMA
     Dosage: 100 UG, AS NEEDED
     Route: 065
  15. PREDNISONE. [Suspect]
     Active Substance: PREDNISONE
     Indication: PRODUCT USED FOR UNKNOWN INDICATION
     Route: 048
     Dates: start: 2018

REACTIONS (26)
  - Disability [Unknown]
  - Eosinophil count increased [Unknown]
  - Hiatus hernia [Unknown]
  - Loss of personal independence in daily activities [Unknown]
  - Viral infection [Unknown]
  - Abdominal pain [Unknown]
  - Blood test abnormal [Unknown]
  - Pain [Unknown]
  - Upper respiratory tract infection [Unknown]
  - Hypogammaglobulinaemia [Unknown]
  - Procedural pain [Unknown]
  - Food allergy [Unknown]
  - Therapeutic product effect incomplete [Unknown]
  - Oesophagogastroduodenoscopy [Unknown]
  - Sleep disorder due to a general medical condition [Unknown]
  - Vomiting [Unknown]
  - Wheezing [Unknown]
  - Asthma [Unknown]
  - Dyspnoea [Unknown]
  - Nausea [Unknown]
  - Pain in jaw [Unknown]
  - Chest pain [Unknown]
  - Post procedural infection [Unknown]
  - Adverse drug reaction [Unknown]
  - Pain in extremity [Unknown]
  - Unevaluable event [Unknown]

NARRATIVE: CASE EVENT DATE: 20200802
